FAERS Safety Report 12878686 (Version 1)
Quarter: 2016Q4

REPORT INFORMATION
  Report Type: Spontaneous
  Country: JP (occurrence: JP)
  Receive Date: 20161024
  Receipt Date: 20161024
  Transmission Date: 20170207
  Serious: Yes (Other)
  Sender: FDA-Public Use
  Company Number: JP-PFIZER INC-2016489778

PATIENT

DRUGS (2)
  1. JZOLOFT 25MG [Suspect]
     Active Substance: SERTRALINE HYDROCHLORIDE
     Dosage: 25 MG, 3X/DAY
     Route: 048
  2. MYSLEE [Concomitant]
     Active Substance: ZOLPIDEM TARTRATE
     Dosage: 5 MG, 1X/DAY (BEFORE BEDTIME)
     Route: 048

REACTIONS (5)
  - Insomnia [Unknown]
  - Pain [Unknown]
  - Metastases to bone [Unknown]
  - Anxiety [Unknown]
  - Breast cancer [Unknown]
